FAERS Safety Report 8230192-8 (Version None)
Quarter: 2012Q1

REPORT INFORMATION
  Report Type: 
  Country: None (occurrence: None)
  Receive Date: 20120323
  Receipt Date: 20120319
  Transmission Date: 20120608
  Serious: Yes (Hospitalization)
  Sender: FDA-Public Use
  Company Number: US-SHIRE-ALL1-2012-01380

PATIENT
  Sex: Male
  Weight: 64.853 kg

DRUGS (5)
  1. PREDNISONE TAB [Suspect]
     Dosage: 60 MG, 1X/DAY:QD(SIX 10 MG TABLETS DAILY)
     Route: 048
     Dates: start: 20120201, end: 20120312
  2. PREDNISONE TAB [Suspect]
     Dosage: 40 MG, 1X/DAY:QD(FOUR 10 MG CAPSULES DAILY)
     Route: 048
     Dates: start: 20120313
  3. LIALDA [Suspect]
     Indication: COLITIS ULCERATIVE
     Dosage: 1.2 G, TWO TABLETS 2X/DAY:BID
     Route: 048
     Dates: start: 20120209, end: 20120313
  4. PREDNISONE TAB [Suspect]
     Indication: COLITIS ULCERATIVE
     Dosage: 40 MG, 1X/DAY:QD
     Route: 048
     Dates: start: 20120209, end: 20120313
  5. PREDNISONE TAB [Suspect]
     Dosage: 30 MG (THREE 10 MG TABLETS), 3X/DAY:TID
     Route: 048
     Dates: start: 20120206, end: 20120208

REACTIONS (9)
  - CONDITION AGGRAVATED [None]
  - DRUG DOSE OMISSION [None]
  - DRUG PRESCRIBING ERROR [None]
  - DIARRHOEA HAEMORRHAGIC [None]
  - DIARRHOEA [None]
  - DRUG INEFFECTIVE [None]
  - GASTROINTESTINAL INFLAMMATION [None]
  - PRE-EXISTING CONDITION IMPROVED [None]
  - WEIGHT DECREASED [None]
